FAERS Safety Report 8519537-9 (Version None)
Quarter: 2012Q3

REPORT INFORMATION
  Report Type: 
  Country: None (occurrence: None)
  Receive Date: 20120718
  Receipt Date: 20120412
  Transmission Date: 20120928
  Serious: Yes (Death, Hospitalization)
  Sender: FDA-Public Use
  Company Number: PHHY2012CA038352

PATIENT
  Sex: Male

DRUGS (1)
  1. EXELON [Suspect]
     Indication: DEMENTIA ALZHEIMER'S TYPE
     Dosage: 9.5 MG/24 HRS
     Route: 062
     Dates: start: 20120301, end: 20120427

REACTIONS (5)
  - DYSPNOEA [None]
  - PNEUMONIA [None]
  - PYREXIA [None]
  - ABNORMAL BEHAVIOUR [None]
  - SPEECH DISORDER [None]
